FAERS Safety Report 10184118 (Version 2)
Quarter: 2014Q2

REPORT INFORMATION
  Report Type: Spontaneous
  Country: SE (occurrence: SE)
  Receive Date: 20140520
  Receipt Date: 20140520
  Transmission Date: 20141212
  Serious: Yes (Other)
  Sender: FDA-Public Use
  Company Number: SE-TEVA-467222ISR

PATIENT
  Age: 65 Year
  Sex: Male
  Weight: 117 kg

DRUGS (13)
  1. BICALUTAMIDE TEVA [Suspect]
     Indication: PROSTATE CANCER
     Route: 048
     Dates: start: 201312
  2. BICALUTAMIDE [Suspect]
     Dosage: 150 MILLIGRAM DAILY;
     Dates: start: 201312
  3. BICALUTAMIDE [Suspect]
     Indication: PROSTATE CANCER
  4. TRAMADOL RETARD MEDARTUUM 100 MG PROLONGED RELEASED TABLET [Concomitant]
  5. ALVEDON 665 MG MODIFIED RELEASED TABLET [Concomitant]
  6. CRESTOR [Concomitant]
  7. BISOPROLOL [Concomitant]
  8. ENALAPRIL SANDOZ 20 MG TABLETT [Concomitant]
  9. IMOVANE 5 MG TABLETT [Concomitant]
  10. MAGNESIUM [Concomitant]
  11. INSULIN HUMAN [Concomitant]
  12. OMEPRAZOLE [Concomitant]
  13. METFORMIN EQL PHARMA 500 MG FILM COATED TABLET [Concomitant]

REACTIONS (38)
  - Cough [Not Recovered/Not Resolved]
  - Breast pain [Not Recovered/Not Resolved]
  - Chills [Not Recovered/Not Resolved]
  - Hyperhidrosis [Not Recovered/Not Resolved]
  - Constipation [Not Recovered/Not Resolved]
  - Dizziness [Not Recovered/Not Resolved]
  - Weight increased [Not Recovered/Not Resolved]
  - Nausea [Not Recovered/Not Resolved]
  - Fatigue [Not Recovered/Not Resolved]
  - Ocular hyperaemia [Not Recovered/Not Resolved]
  - Dyspepsia [Not Recovered/Not Resolved]
  - Dyspnoea [Not Recovered/Not Resolved]
  - Abdominal pain upper [Not Recovered/Not Resolved]
  - Chest pain [Not Recovered/Not Resolved]
  - Back pain [Not Recovered/Not Resolved]
  - Headache [Not Recovered/Not Resolved]
  - Dry mouth [Not Recovered/Not Resolved]
  - Flatulence [Not Recovered/Not Resolved]
  - Pigmentation disorder [Not Recovered/Not Resolved]
  - Vomiting [Not Recovered/Not Resolved]
  - Dry skin [Not Recovered/Not Resolved]
  - Arthralgia [Not Recovered/Not Resolved]
  - Presyncope [Not Recovered/Not Resolved]
  - Asthenia [Not Recovered/Not Resolved]
  - Somnolence [Not Recovered/Not Resolved]
  - Nasal congestion [Not Recovered/Not Resolved]
  - Dry eye [Not Recovered/Not Resolved]
  - Eye irritation [Not Recovered/Not Resolved]
  - Peripheral swelling [Not Recovered/Not Resolved]
  - Constipation [Not Recovered/Not Resolved]
  - Nodule [Not Recovered/Not Resolved]
  - Breast enlargement [Not Recovered/Not Resolved]
  - Libido decreased [Not Recovered/Not Resolved]
  - Hot flush [Not Recovered/Not Resolved]
  - Dyspepsia [Not Recovered/Not Resolved]
  - Blood glucose increased [Not Recovered/Not Resolved]
  - Rash [Not Recovered/Not Resolved]
  - Paralysis [Not Recovered/Not Resolved]
